FAERS Safety Report 15940729 (Version 1)
Quarter: 2019Q1

REPORT INFORMATION
  Report Type: Spontaneous
  Country: IE (occurrence: IE)
  Receive Date: 20190208
  Receipt Date: 20190208
  Transmission Date: 20190417
  Serious: Yes (Other)
  Sender: FDA-Public Use
  Company Number: IE-PFIZER INC-2018535129

PATIENT
  Age: 17 Year
  Sex: Female
  Weight: 55 kg

DRUGS (78)
  1. ATIVAN [Suspect]
     Active Substance: LORAZEPAM
     Dosage: 0.5 MG, DAILY
     Dates: start: 20180822, end: 20180822
  2. ATIVAN [Suspect]
     Active Substance: LORAZEPAM
     Dosage: 2 MG, DAILY
     Dates: start: 20181015, end: 20181015
  3. ATIVAN [Suspect]
     Active Substance: LORAZEPAM
     Dosage: 1.25 MG, DAILY
     Dates: start: 20181116, end: 20181119
  4. ATIVAN [Suspect]
     Active Substance: LORAZEPAM
     Dosage: 1 MG, DAILY
     Dates: start: 20181122, end: 20181202
  5. ATIVAN [Suspect]
     Active Substance: LORAZEPAM
     Dosage: 0.75 MG, DAILY
     Dates: start: 20181204, end: 20181211
  6. OLANZAPINE. [Concomitant]
     Active Substance: OLANZAPINE
     Dosage: 7.5 MG, DAILY
     Dates: start: 20181015, end: 20181016
  7. OLANZAPINE. [Concomitant]
     Active Substance: OLANZAPINE
     Dosage: 15 MG, DAILY
     Dates: start: 20190114, end: 20190115
  8. ATIVAN [Suspect]
     Active Substance: LORAZEPAM
     Dosage: 4 MG, DAILY
     Dates: start: 20180807, end: 20180812
  9. ATIVAN [Suspect]
     Active Substance: LORAZEPAM
     Dosage: 1.5 MG, DAILY
     Dates: start: 20181105, end: 20181105
  10. ATIVAN [Suspect]
     Active Substance: LORAZEPAM
     Dosage: 1.5 MG, DAILY
     Dates: start: 20181108, end: 20181115
  11. OLANZAPINE. [Concomitant]
     Active Substance: OLANZAPINE
     Dosage: 12.5 MG, DAILY
     Dates: start: 20181107, end: 20181130
  12. ZOLNOD [Concomitant]
     Dosage: 10 MG, DAILY
     Dates: start: 20180910, end: 20180910
  13. ZOLNOD [Concomitant]
     Dosage: 10 MG, DAILY
     Dates: start: 20181122, end: 20181123
  14. ATIVAN [Suspect]
     Active Substance: LORAZEPAM
     Indication: INSOMNIA
     Dosage: 3 MG, DAILY
     Dates: start: 20180803, end: 20180803
  15. ATIVAN [Suspect]
     Active Substance: LORAZEPAM
     Indication: BIPOLAR DISORDER
     Dosage: 2 MG, DAILY
     Dates: start: 20180806, end: 20180806
  16. ATIVAN [Suspect]
     Active Substance: LORAZEPAM
     Dosage: 5 MG, DAILY
     Dates: start: 20180911, end: 20180914
  17. ATIVAN [Suspect]
     Active Substance: LORAZEPAM
     Dosage: 1 MG, DAILY
     Dates: start: 20180928, end: 20180928
  18. ATIVAN [Suspect]
     Active Substance: LORAZEPAM
     Dosage: 1.75 MG, DAILY
     Dates: start: 20181203, end: 20181203
  19. OLANZAPINE. [Concomitant]
     Active Substance: OLANZAPINE
     Dosage: 10 MG, DAILY
     Dates: start: 20181017, end: 20181017
  20. EPILIM [Concomitant]
     Active Substance: VALPROATE SODIUM
     Dosage: 1750 MG, UNK
  21. ZOLNOD [Concomitant]
     Dosage: 10 MG, DAILY
     Dates: start: 20180915, end: 20181001
  22. ATIVAN [Suspect]
     Active Substance: LORAZEPAM
     Indication: ANXIETY
     Dosage: 4 MG, DAILY
     Dates: start: 20180804, end: 20180804
  23. ATIVAN [Suspect]
     Active Substance: LORAZEPAM
     Dosage: 4 MG, DAILY
     Dates: start: 20181022, end: 20181022
  24. ATIVAN [Suspect]
     Active Substance: LORAZEPAM
     Dosage: 2 MG, DAILY
     Dates: start: 20181106, end: 20181107
  25. ATIVAN [Suspect]
     Active Substance: LORAZEPAM
     Dosage: 1 MG, DAILY
     Dates: start: 20181120, end: 20181120
  26. EPILIM [Concomitant]
     Active Substance: VALPROATE SODIUM
     Dosage: 250 MG, DAILY
     Dates: start: 20180910, end: 20180911
  27. ZOLNOD [Concomitant]
     Dosage: 10 MG, DAILY
     Dates: start: 20180810, end: 20180810
  28. ZOLNOD [Concomitant]
     Dosage: 10 MG, DAILY
     Dates: start: 20181010, end: 20181010
  29. ATIVAN [Suspect]
     Active Substance: LORAZEPAM
     Dosage: 3.5 MG, DAILY
     Dates: start: 20180813, end: 20180813
  30. ATIVAN [Suspect]
     Active Substance: LORAZEPAM
     Dosage: 2.5 MG, DAILY
     Dates: start: 20180816, end: 20180816
  31. ATIVAN [Suspect]
     Active Substance: LORAZEPAM
     Dosage: 2 MG, DAILY
     Dates: start: 20180817, end: 20180817
  32. ATIVAN [Suspect]
     Active Substance: LORAZEPAM
     Dosage: 1.5 MG, DAILY
     Dates: start: 20180818, end: 20180821
  33. ATIVAN [Suspect]
     Active Substance: LORAZEPAM
     Dosage: 5 MG, DAILY
     Dates: start: 20180915, end: 20180923
  34. ATIVAN [Suspect]
     Active Substance: LORAZEPAM
     Dosage: 3.5 MG, DAILY
     Dates: start: 20180924, end: 20180925
  35. ATIVAN [Suspect]
     Active Substance: LORAZEPAM
     Dosage: 2 MG, DAILY
     Dates: start: 20180927, end: 20180927
  36. ATIVAN [Suspect]
     Active Substance: LORAZEPAM
     Dosage: 3 MG, DAILY
     Dates: start: 20181016, end: 20181017
  37. ATIVAN [Suspect]
     Active Substance: LORAZEPAM
     Dosage: 6 MG, DAILY
     Dates: start: 20181018, end: 20181018
  38. ATIVAN [Suspect]
     Active Substance: LORAZEPAM
     Dosage: 4 MG, DAILY
     Dates: start: 20181019, end: 20181020
  39. ATIVAN [Suspect]
     Active Substance: LORAZEPAM
     Dosage: 3 MG, DAILY
     Dates: start: 20181021, end: 20181021
  40. ATIVAN [Suspect]
     Active Substance: LORAZEPAM
     Dosage: 0.5 MG, DAILY
     Dates: start: 20181212, end: 20181218
  41. OLANZAPINE. [Concomitant]
     Active Substance: OLANZAPINE
     Dosage: 5 MG, DAILY
     Dates: start: 20180803, end: 20180803
  42. OLANZAPINE. [Concomitant]
     Active Substance: OLANZAPINE
     Dosage: 7.5 MG, DAILY
     Dates: start: 20180828, end: 20180829
  43. OLANZAPINE. [Concomitant]
     Active Substance: OLANZAPINE
     Dosage: 15 MG, DAILY
     Dates: start: 20180915, end: 20180925
  44. OLANZAPINE. [Concomitant]
     Active Substance: OLANZAPINE
     Dosage: 2.5 MG, DAILY
     Dates: start: 20181010, end: 20181013
  45. OLANZAPINE. [Concomitant]
     Active Substance: OLANZAPINE
     Dosage: 5 MG, DAILY
     Dates: start: 20181014, end: 20181014
  46. OLANZAPINE. [Concomitant]
     Active Substance: OLANZAPINE
     Dosage: 20 MG, DAILY
     Dates: start: 20181225, end: 20181225
  47. OLANZAPINE. [Concomitant]
     Active Substance: OLANZAPINE
     Dosage: 17.5 MG, DAILY
     Dates: start: 20181226, end: 20190113
  48. EPILIM [Concomitant]
     Active Substance: VALPROATE SODIUM
     Dosage: 1500 MG, DAILY
     Dates: start: 20181015, end: 20181125
  49. ZOLNOD [Concomitant]
     Dosage: 10 MG, DAILY
     Dates: start: 20180804, end: 20180804
  50. ZOLNOD [Concomitant]
     Dosage: 10 MG, DAILY
     Dates: start: 20180812, end: 20180812
  51. ZOLNOD [Concomitant]
     Dosage: 10 MG, DAILY
     Dates: start: 20180912, end: 20180912
  52. ZOLNOD [Concomitant]
     Dosage: 10 MG, DAILY
     Dates: start: 20181125, end: 20181129
  53. ATIVAN [Suspect]
     Active Substance: LORAZEPAM
     Dosage: 3 MG, DAILY
     Dates: start: 20180814, end: 20180815
  54. ATIVAN [Suspect]
     Active Substance: LORAZEPAM
     Dosage: 0.5 MG, DAILY
     Dates: start: 20180907, end: 20180908
  55. ATIVAN [Suspect]
     Active Substance: LORAZEPAM
     Dosage: 3 MG, DAILY
     Dates: start: 20181023, end: 20181101
  56. ATIVAN [Suspect]
     Active Substance: LORAZEPAM
     Dosage: 2 MG, DAILY
     Dates: start: 20181121, end: 20181121
  57. OLANZAPINE. [Concomitant]
     Active Substance: OLANZAPINE
     Dosage: 10 MG, DAILY
     Dates: start: 20180926, end: 20181003
  58. OLANZAPINE. [Concomitant]
     Active Substance: OLANZAPINE
     Dosage: 7.5 MG, WEEKLY
     Dates: start: 20181004, end: 20181008
  59. OLANZAPINE. [Concomitant]
     Active Substance: OLANZAPINE
     Dosage: 17.5 MG, DAILY
     Dates: start: 20181201, end: 20181224
  60. EPILIM [Concomitant]
     Active Substance: VALPROATE SODIUM
     Dosage: 500 MG, DAILY
     Dates: start: 20180912, end: 20180912
  61. ZOLNOD [Concomitant]
     Dosage: 10 MG, DAILY
     Dates: start: 20180807, end: 20180807
  62. ZOLNOD [Concomitant]
     Dosage: 10 MG, DAILY
     Dates: start: 20181018, end: 20181020
  63. ATIVAN [Suspect]
     Active Substance: LORAZEPAM
     Dosage: 6 MG, DAILY
     Dates: start: 20180910, end: 20180910
  64. ATIVAN [Suspect]
     Active Substance: LORAZEPAM
     Dosage: 2.5 MG, DAILY, TAPERING
     Dates: start: 20181102, end: 20181104
  65. ATIVAN [Suspect]
     Active Substance: LORAZEPAM
     Dosage: 0.25 MG, DAILY
     Dates: start: 20181219, end: 20190105
  66. OLANZAPINE. [Concomitant]
     Active Substance: OLANZAPINE
     Dosage: 10 MG, DAILY
     Dates: start: 20180804, end: 20180827
  67. EPILIM [Concomitant]
     Active Substance: VALPROATE SODIUM
     Dosage: 1000 MG, DAILY
     Dates: start: 20180927, end: 20181014
  68. ZOLNOD [Concomitant]
     Dosage: 5 MG, DAILY
     Dates: start: 20181222, end: 20181222
  69. ZOLNOD [Concomitant]
     Dosage: UNK
  70. PROGESTERONE. [Concomitant]
     Active Substance: PROGESTERONE
  71. ATIVAN [Suspect]
     Active Substance: LORAZEPAM
     Dosage: 4 MG, DAILY
     Dates: start: 20180909, end: 20180909
  72. OLANZAPINE. [Concomitant]
     Active Substance: OLANZAPINE
     Dosage: 5 MG, DAILY
     Dates: start: 20180830, end: 20180908
  73. OLANZAPINE. [Concomitant]
     Active Substance: OLANZAPINE
     Dosage: 10 MG, DAILY
     Dates: start: 20180909, end: 20180914
  74. OLANZAPINE. [Concomitant]
     Active Substance: OLANZAPINE
     Dosage: 5 MG, DAILY
     Dates: start: 20181009, end: 20181009
  75. OLANZAPINE. [Concomitant]
     Active Substance: OLANZAPINE
     Dosage: 15 MG, DAILY
     Dates: start: 20181018, end: 20181106
  76. EPILIM [Concomitant]
     Active Substance: VALPROATE SODIUM
     Dosage: 500 MG, DAILY
     Dates: start: 20180915, end: 20180926
  77. EPILIM [Concomitant]
     Active Substance: VALPROATE SODIUM
     Dosage: 1750 MG, DAILY
     Dates: start: 20181126, end: 20190115
  78. ZOLNOD [Concomitant]
     Dosage: 10 MG, DAILY
     Dates: start: 20181022, end: 20181024

REACTIONS (47)
  - Vomiting [Unknown]
  - Dizziness [Unknown]
  - Grip strength decreased [Unknown]
  - Slow response to stimuli [Unknown]
  - Withdrawal syndrome [Not Recovered/Not Resolved]
  - Tremor [Unknown]
  - Breath odour [Unknown]
  - Epistaxis [Unknown]
  - Hypersomnia [Unknown]
  - Paranoia [Unknown]
  - Euphoric mood [Unknown]
  - Sedation complication [Unknown]
  - Suicidal ideation [Unknown]
  - Mania [Unknown]
  - Depressed mood [Unknown]
  - Drug ineffective [Unknown]
  - Self-injurious ideation [Unknown]
  - Abdominal distension [Unknown]
  - Nasal congestion [Unknown]
  - Retching [Unknown]
  - Headache [Unknown]
  - Platelet count decreased [Unknown]
  - Frequent bowel movements [Unknown]
  - Asthenia [Unknown]
  - Chills [Unknown]
  - Feeling cold [Unknown]
  - Temporal lobe epilepsy [Unknown]
  - Off label use [Unknown]
  - Deja vu [Unknown]
  - Ear congestion [Unknown]
  - Hot flush [Unknown]
  - Skin irritation [Unknown]
  - Intentional self-injury [Unknown]
  - Delusion [Unknown]
  - Fatigue [Unknown]
  - Restlessness [Unknown]
  - Sensory disturbance [Unknown]
  - Mydriasis [Unknown]
  - Tearfulness [Unknown]
  - Dysarthria [Unknown]
  - Ocular hyperaemia [Unknown]
  - Photophobia [Unknown]
  - Medication error [Unknown]
  - Hyperacusis [Unknown]
  - Eye pruritus [Unknown]
  - Feeling abnormal [Unknown]
  - Thermal burn [Unknown]

NARRATIVE: CASE EVENT DATE: 2018
